FAERS Safety Report 24993248 (Version 2)
Quarter: 2025Q2

REPORT INFORMATION
  Report Type: Spontaneous
  Country: US (occurrence: US)
  Receive Date: 20250221
  Receipt Date: 20250509
  Transmission Date: 20250716
  Serious: Yes (Other)
  Sender: JOHNSON AND JOHNSON
  Company Number: US-JNJFOC-20250228400

PATIENT
  Sex: Male

DRUGS (1)
  1. STELARA [Suspect]
     Active Substance: USTEKINUMAB
     Indication: Colitis
     Route: 058
     Dates: start: 202409

REACTIONS (7)
  - Colitis [Not Recovered/Not Resolved]
  - Hypoaesthesia [Unknown]
  - Dyspnoea [Unknown]
  - Headache [Unknown]
  - Off label use [Unknown]
  - Drug ineffective [Unknown]
  - Drug level decreased [Unknown]
